FAERS Safety Report 7307703-X (Version None)
Quarter: 2011Q1

REPORT INFORMATION
  Report Type: 
  Country: None (occurrence: None)
  Receive Date: 20110223
  Receipt Date: 20110209
  Transmission Date: 20110831
  Serious: No
  Sender: FDA-Public Use
  Company Number: US-PFIZER INC-US-WYE-H17388410

PATIENT
  Sex: Male
  Weight: 63.5 kg

DRUGS (6)
  1. LEXAPRO [Concomitant]
  2. NIASPAN [Concomitant]
  3. ACETYLSALICYLIC ACID [Concomitant]
  4. PRISTIQ [Suspect]
     Indication: DEPRESSION
  5. PRISTIQ [Suspect]
     Indication: ANXIETY
     Dosage: 50 MG, 1X/DAY
     Route: 065
     Dates: start: 20100701
  6. XANAX [Suspect]
     Dosage: UNKNOWN
     Route: 065

REACTIONS (6)
  - FEELING ABNORMAL [None]
  - INSOMNIA [None]
  - BLOOD PRESSURE INCREASED [None]
  - DRUG EFFECT DECREASED [None]
  - NAUSEA [None]
  - AGITATION [None]
